FAERS Safety Report 6984063-5 (Version None)
Quarter: 2010Q3

REPORT INFORMATION
  Report Type: 
  Country: None (occurrence: None)
  Receive Date: 20100915
  Receipt Date: 20090623
  Transmission Date: 20110219
  Serious: No
  Sender: FDA-Public Use
  Company Number: US-WYE-H09372109

PATIENT
  Sex: Male
  Weight: 75.82 kg

DRUGS (8)
  1. ADVIL LIQUI-GELS [Suspect]
     Indication: ARTHRITIS
     Route: 048
     Dates: end: 20090512
  2. ADVIL LIQUI-GELS [Suspect]
     Indication: PAIN
  3. ADVIL PM [Suspect]
  4. CENTRUM SILVER [Suspect]
  5. FISH [Concomitant]
  6. NEXIUM [Concomitant]
  7. LIPITOR [Concomitant]
  8. CALTRATE 600 + VITAMIN D [Suspect]

REACTIONS (1)
  - BLOOD CREATINE INCREASED [None]
